FAERS Safety Report 16068009 (Version 1)
Quarter: 2019Q1

REPORT INFORMATION
  Report Type: Spontaneous
  Country: US (occurrence: US)
  Receive Date: 20190212
  Receipt Date: 20190212
  Transmission Date: 20190418
  Serious: Yes (Other)
  Sender: FDA-Public Use
  Company Number: None

PATIENT
  Age: 57 Year
  Sex: Female
  Weight: 159.3 kg

DRUGS (2)
  1. FORSKOLIN [Suspect]
     Active Substance: COLFORSIN
     Indication: WEIGHT DECREASED
     Dosage: ?          OTHER FREQUENCY:UNKNOWN;?
     Route: 048
     Dates: start: 20190101, end: 20190118
  2. METAMPHETAMINE [Suspect]
     Active Substance: METHAMPHETAMINE

REACTIONS (2)
  - Drug screen positive [None]
  - Product formulation issue [None]

NARRATIVE: CASE EVENT DATE: 20190118
